FAERS Safety Report 12532187 (Version 3)
Quarter: 2016Q3

REPORT INFORMATION
  Report Type: Report from Study
  Country: US (occurrence: US)
  Receive Date: 20160706
  Receipt Date: 20160826
  Transmission Date: 20161109
  Serious: Yes (Other)
  Sender: FDA-Public Use
  Company Number: US-ABBVIE-16P-163-1667894-00

PATIENT
  Age: 22 Year
  Sex: Female

DRUGS (7)
  1. NORETHINDRONE ACETATE. [Concomitant]
     Active Substance: NORETHINDRONE ACETATE
     Indication: HOT FLUSH
     Route: 048
     Dates: start: 201209
  2. LUPRON DEPOT [Suspect]
     Active Substance: LEUPROLIDE ACETATE
     Indication: ENDOMETRIOSIS
     Route: 050
     Dates: start: 201209
  3. LUPRON DEPOT [Suspect]
     Active Substance: LEUPROLIDE ACETATE
     Route: 050
     Dates: start: 201605, end: 201608
  4. ZYRTEC [Concomitant]
     Active Substance: CETIRIZINE HYDROCHLORIDE
     Indication: SEASONAL ALLERGY
     Dosage: DAILY
     Route: 048
  5. LUPRON DEPOT [Suspect]
     Active Substance: LEUPROLIDE ACETATE
     Indication: ENDOMETRIOSIS
     Route: 050
     Dates: start: 201206, end: 201208
  6. NORETHINDRONE ACETATE. [Concomitant]
     Active Substance: NORETHINDRONE ACETATE
     Indication: NIGHT SWEATS
     Route: 048
     Dates: start: 2014
  7. LUPRON DEPOT [Suspect]
     Active Substance: LEUPROLIDE ACETATE
     Route: 050
     Dates: start: 201405

REACTIONS (22)
  - Urinary retention [Recovered/Resolved]
  - Endometriosis [Not Recovered/Not Resolved]
  - Endometriosis [Not Recovered/Not Resolved]
  - Neurectomy [Unknown]
  - Endometriosis [Not Recovered/Not Resolved]
  - Device occlusion [Unknown]
  - Stent placement [Unknown]
  - Hot flush [Recovered/Resolved]
  - Pelvic pain [Not Recovered/Not Resolved]
  - Ovarian cyst [Unknown]
  - Endometriosis [Not Recovered/Not Resolved]
  - Emergency care [Unknown]
  - Back pain [Not Recovered/Not Resolved]
  - Ureteric injury [Recovered/Resolved]
  - Ureteral stent insertion [Unknown]
  - Amenorrhoea [Recovered/Resolved]
  - Endometriosis [Unknown]
  - Drug ineffective [Not Recovered/Not Resolved]
  - Seasonal allergy [Not Recovered/Not Resolved]
  - Endometriosis [Not Recovered/Not Resolved]
  - Night sweats [Recovered/Resolved]
  - Metrorrhagia [Not Recovered/Not Resolved]

NARRATIVE: CASE EVENT DATE: 201206
